FAERS Safety Report 20025011 (Version 1)
Quarter: 2021Q4

REPORT INFORMATION
  Report Type: Spontaneous
  Country: JP (occurrence: JP)
  Receive Date: 20211102
  Receipt Date: 20211102
  Transmission Date: 20220303
  Serious: Yes (Other)
  Sender: FDA-Public Use
  Company Number: JP-BRISTOL-MYERS SQUIBB COMPANY-BMS-2021-113063

PATIENT
  Age: 76 Year
  Sex: Male

DRUGS (2)
  1. HYDREA [Suspect]
     Active Substance: HYDROXYUREA
     Indication: Essential thrombocythaemia
     Dosage: UNK
     Route: 065
     Dates: start: 2015
  2. ASPIRIN [Concomitant]
     Active Substance: ASPIRIN
     Indication: Essential thrombocythaemia
     Dosage: UNK
     Route: 065
     Dates: start: 2015

REACTIONS (4)
  - Ileus [Unknown]
  - Procedural haemorrhage [Unknown]
  - Subcutaneous haematoma [Unknown]
  - Diapedesis [Unknown]
